FAERS Safety Report 18327143 (Version 2)
Quarter: 2020Q4

REPORT INFORMATION
  Report Type: Report from Study
  Country: None (occurrence: CA)
  Receive Date: 20200930
  Receipt Date: 20201019
  Transmission Date: 20210113
  Serious: Yes (Hospitalization, Other)
  Sender: FDA-Public Use
  Company Number: CA-ABBVIE-20K-028-3582795-00

PATIENT
  Age: 58 Year
  Sex: Male

DRUGS (1)
  1. SKYRIZI [Suspect]
     Active Substance: RISANKIZUMAB-RZAA
     Indication: PSORIASIS
     Route: 058
     Dates: start: 20190719

REACTIONS (7)
  - Cardiac failure congestive [Not Recovered/Not Resolved]
  - Myalgia [Not Recovered/Not Resolved]
  - Myocardial infarction [Unknown]
  - Coronary artery disease [Not Recovered/Not Resolved]
  - Chills [Not Recovered/Not Resolved]
  - Crepitations [Not Recovered/Not Resolved]
  - Surgery [Unknown]

NARRATIVE: CASE EVENT DATE: 2020
